FAERS Safety Report 5774094-5 (Version None)
Quarter: 2008Q2

REPORT INFORMATION
  Report Type: 
  Country: None (occurrence: None)
  Receive Date: 20080616
  Receipt Date: 20080606
  Transmission Date: 20081010
  Serious: Yes (Hospitalization)
  Sender: FDA-Public Use
  Company Number: JP-MERCK-0806USA01856

PATIENT
  Age: 74 Year
  Sex: Male

DRUGS (5)
  1. HYZAAR [Suspect]
     Indication: HYPERTENSION
     Route: 048
     Dates: start: 20080101, end: 20080401
  2. TOWARAT [Concomitant]
     Indication: HYPERTENSION
     Route: 048
  3. LIVALO [Concomitant]
     Indication: LIPIDS ABNORMAL
     Route: 048
     Dates: end: 20080515
  4. BUFFERIN [Concomitant]
     Indication: ANGINA PECTORIS
     Route: 048
  5. SYAKUYAKU-KANZOTO [Concomitant]
     Route: 048
     Dates: start: 20080401

REACTIONS (2)
  - DEPRESSED LEVEL OF CONSCIOUSNESS [None]
  - HYPONATRAEMIA [None]
